FAERS Safety Report 9557448 (Version 1)
Quarter: 2013Q3

REPORT INFORMATION
  Report Type: Spontaneous
  Country: CN (occurrence: CN)
  Receive Date: 20130926
  Receipt Date: 20130926
  Transmission Date: 20140515
  Serious: Yes (Life-Threatening, Hospitalization)
  Sender: FDA-Public Use
  Company Number: CN-BAYER-2013-115930

PATIENT
  Age: 67 Year
  Sex: Female

DRUGS (1)
  1. ULTRAVIST [Suspect]
     Indication: COMPUTERISED TOMOGRAM THORAX
     Dosage: UNK
     Dates: start: 20130922, end: 20130922

REACTIONS (7)
  - Cardiac arrest [Recovered/Resolved]
  - Labile blood pressure [Not Recovered/Not Resolved]
  - Hypersensitivity [None]
  - Blood pressure immeasurable [None]
  - Loss of consciousness [None]
  - Apnoea [None]
  - Coma [Not Recovered/Not Resolved]
